FAERS Safety Report 5591865-9 (Version None)
Quarter: 2008Q1

REPORT INFORMATION
  Report Type: 
  Country: None (occurrence: None)
  Receive Date: 20080115
  Receipt Date: 20080103
  Transmission Date: 20080703
  Serious: Yes (Other)
  Sender: FDA-Public Use
  Company Number: B0503212A

PATIENT
  Sex: Male

DRUGS (1)
  1. SEROXAT [Suspect]
     Dates: start: 19990101

REACTIONS (38)
  - ABASIA [None]
  - ABDOMINAL PAIN UPPER [None]
  - ALOPECIA [None]
  - AMNESIA [None]
  - ANGER [None]
  - BALANCE DISORDER [None]
  - BURNING SENSATION [None]
  - CONFUSIONAL STATE [None]
  - DEAFNESS [None]
  - DELUSION [None]
  - DEPRESSION [None]
  - DIPLOPIA [None]
  - DISORIENTATION [None]
  - DISSOCIATION [None]
  - DRY SKIN [None]
  - DYSKINESIA [None]
  - DYSURIA [None]
  - EYE PAIN [None]
  - GASTRITIS [None]
  - HALLUCINATION [None]
  - HEADACHE [None]
  - INSOMNIA [None]
  - JOINT STIFFNESS [None]
  - MUSCLE SPASMS [None]
  - MUSCULOSKELETAL STIFFNESS [None]
  - NECK PAIN [None]
  - NEGATIVE THOUGHTS [None]
  - NEURALGIA [None]
  - NIGHT SWEATS [None]
  - NIGHTMARE [None]
  - OESOPHAGEAL PAIN [None]
  - ORAL DISCOMFORT [None]
  - PARAESTHESIA [None]
  - PHOTOSENSITIVITY REACTION [None]
  - PSYCHOMOTOR HYPERACTIVITY [None]
  - SENSORY DISTURBANCE [None]
  - THROAT TIGHTNESS [None]
  - URINARY INCONTINENCE [None]
